FAERS Safety Report 19750994 (Version 1)
Quarter: 2021Q3

REPORT INFORMATION
  Report Type: Spontaneous
  Country: DE (occurrence: DE)
  Receive Date: 20210826
  Receipt Date: 20210826
  Transmission Date: 20211014
  Serious: Yes (Other)
  Sender: FDA-Public Use
  Company Number: NVSC2021DE187473

PATIENT
  Age: 6 Month
  Sex: Male

DRUGS (3)
  1. EVEROLIMUS. [Suspect]
     Active Substance: EVEROLIMUS
     Indication: CARDIAC FAILURE
  2. EVEROLIMUS. [Suspect]
     Active Substance: EVEROLIMUS
     Indication: RIGHT VENTRICLE OUTFLOW TRACT OBSTRUCTION
     Dosage: 0.2 MG/KG, QD
     Route: 065
  3. EVEROLIMUS. [Suspect]
     Active Substance: EVEROLIMUS
     Indication: LEFT VENTRICLE OUTFLOW TRACT OBSTRUCTION

REACTIONS (3)
  - Mitral valve incompetence [Recovering/Resolving]
  - Off label use [Unknown]
  - Pruritus [Unknown]
